FAERS Safety Report 5397165-4 (Version None)
Quarter: 2007Q3

REPORT INFORMATION
  Report Type: 
  Country: None (occurrence: None)
  Receive Date: 20070725
  Receipt Date: 20070717
  Transmission Date: 20080115
  Serious: Yes (Hospitalization, Other)
  Sender: FDA-Public Use
  Company Number: JP-PFIZER INC-2007054737

PATIENT
  Sex: Female
  Weight: 47 kg

DRUGS (1)
  1. SOLANAX [Suspect]
     Indication: HYPERVENTILATION
     Route: 048
     Dates: start: 20070615, end: 20070628

REACTIONS (2)
  - APNOEA [None]
  - HYPERVENTILATION [None]
